FAERS Safety Report 16277576 (Version 1)
Quarter: 2019Q2

REPORT INFORMATION
  Report Type: Spontaneous
  Country: US (occurrence: US)
  Receive Date: 20190506
  Receipt Date: 20190506
  Transmission Date: 20190711
  Serious: Yes (Hospitalization, Other)
  Sender: FDA-Public Use
  Company Number: US-PFIZER INC-2019188912

PATIENT
  Age: 40 Year
  Sex: Female

DRUGS (2)
  1. METHOTREXATE SODIUM. [Suspect]
     Active Substance: METHOTREXATE SODIUM
     Dosage: UNK, WEEKLY (1.2 CC / WEEK)
  2. HUMIRA [Suspect]
     Active Substance: ADALIMUMAB

REACTIONS (11)
  - Insomnia [Unknown]
  - Drug level below therapeutic [Unknown]
  - Sensory loss [Unknown]
  - Stomatitis [Unknown]
  - Dizziness [Unknown]
  - Pain [Unknown]
  - Spondylitis [Unknown]
  - Intervertebral disc protrusion [Unknown]
  - Disorientation [Unknown]
  - Condition aggravated [Unknown]
  - Drug ineffective [Unknown]

NARRATIVE: CASE EVENT DATE: 2018
